FAERS Safety Report 8773336 (Version 1)
Quarter: 2012Q4

REPORT INFORMATION
  Report Type: 
  Country: DK (occurrence: AU)
  Receive Date: 20120907
  Receipt Date: 20120907
  Transmission Date: 20130627
  Serious: Yes (Death)
  Sender: FDA-Public Use
  Company Number: AU-FRI-1000038423

PATIENT
  Age: 34 Year
  Sex: Female

DRUGS (8)
  1. LEXAPRO [Suspect]
     Indication: PERSONALITY DISORDER
     Route: 048
  2. LEXAPRO [Suspect]
     Indication: AFFECTIVE DISORDER
     Dosage: OVERDOSE: Unknown dose
     Route: 048
  3. OLANZAPINE [Concomitant]
     Indication: PERSONALITY DISORDER
  4. OLANZAPINE [Concomitant]
     Indication: AFFECTIVE DISORDER
  5. OXAZEPAM [Concomitant]
     Indication: PERSONALITY DISORDER
  6. OXAZEPAM [Concomitant]
     Indication: AFFECTIVE DISORDER
  7. TEMAZEPAM [Concomitant]
     Indication: PERSONALITY DISORDER
  8. TEMAZEPAM [Concomitant]
     Indication: AFFECTIVE DISORDER

REACTIONS (1)
  - Overdose [Fatal]
